FAERS Safety Report 5726934-3 (Version None)
Quarter: 2008Q2

REPORT INFORMATION
  Report Type: 
  Country: None (occurrence: None)
  Receive Date: 20080501
  Receipt Date: 20080110
  Transmission Date: 20081010
  Serious: Yes (Other)
  Sender: FDA-Public Use
  Company Number: PHEH2008US01101

PATIENT
  Age: 56 Year
  Sex: Female
  Weight: 106.1 kg

DRUGS (11)
  1. DIOVAN HCT [Suspect]
     Indication: HYPERTENSION
     Dosage: 80MG VAL/12.5MG VAL, QD
  2. DIOVAN [Suspect]
     Indication: HYPERTENSION
     Dates: start: 20050412
  3. CALAN [Concomitant]
  4. AXID [Concomitant]
  5. LESCOL [Concomitant]
  6. TRANSENE (CLORAZEPATE DIPOTASSIUM) [Concomitant]
  7. FIORINAL [Concomitant]
  8. ZANTAC [Concomitant]
  9. ZETIA [Concomitant]
  10. LEVOXYL [Concomitant]
  11. ASPIRIN [Concomitant]

REACTIONS (5)
  - ANGIOEDEMA [None]
  - LIP SWELLING [None]
  - OEDEMA PERIPHERAL [None]
  - SWELLING FACE [None]
  - SWOLLEN TONGUE [None]
